FAERS Safety Report 19562843 (Version 1)
Quarter: 2021Q3

REPORT INFORMATION
  Report Type: Spontaneous
  Country: IT (occurrence: IT)
  Receive Date: 20210715
  Receipt Date: 20210715
  Transmission Date: 20211014
  Serious: Yes (Other)
  Sender: FDA-Public Use
  Company Number: IT-SAMSUNG BIOEPIS-SB-2021-17032

PATIENT

DRUGS (1)
  1. FLIXABI [Suspect]
     Active Substance: INFLIXIMAB
     Indication: CROHN^S DISEASE
     Dosage: UNKNOWN
     Route: 065
     Dates: start: 202104

REACTIONS (2)
  - Crohn^s disease [Unknown]
  - Therapeutic product effect incomplete [Unknown]
